FAERS Safety Report 8683264 (Version 2)
Quarter: 2012Q4

REPORT INFORMATION
  Report Type: 
  Country: US (occurrence: US)
  Receive Date: 20120726
  Receipt Date: 20121003
  Transmission Date: 20130627
  Serious: No
  Sender: FDA-Public Use
  Company Number: US-009507513-2012SP029660

PATIENT
  Age: 73 Year
  Sex: Female

DRUGS (4)
  1. NASONEX [Suspect]
     Indication: HYPERSENSITIVITY
     Dosage: 2 DF, qd, 2 sprays in each nostril, once daily
     Route: 045
  2. METICORTEN [Concomitant]
  3. ALBUTEROL [Concomitant]
  4. SEREVENT [Concomitant]

REACTIONS (5)
  - Chest discomfort [Not Recovered/Not Resolved]
  - Accidental exposure to product [Unknown]
  - Dyspnoea [Not Recovered/Not Resolved]
  - Product quality issue [Unknown]
  - Device malfunction [None]
